FAERS Safety Report 12120941 (Version 1)
Quarter: 2016Q1

REPORT INFORMATION
  Report Type: Spontaneous
  Country: US (occurrence: US)
  Receive Date: 20160226
  Receipt Date: 20160226
  Transmission Date: 20160526
  Serious: No
  Sender: FDA-Public Use
  Company Number: US-ALLERGAN-1204197US

PATIENT
  Sex: Male

DRUGS (2)
  1. PAINT STRIPPER INTO EYE WHILE REMODELING HOME [Suspect]
     Active Substance: UNSPECIFIED INGREDIENT
  2. REFRESH OPTIVE [Suspect]
     Active Substance: CARBOXYMETHYLCELLULOSE SODIUM\GLYCERIN
     Indication: EYE DISORDER
     Route: 047

REACTIONS (1)
  - Eye irritation [Unknown]
